FAERS Safety Report 6218833-8 (Version None)
Quarter: 2009Q2

REPORT INFORMATION
  Report Type: 
  Country: None (occurrence: None)
  Receive Date: 20090605
  Receipt Date: 20090520
  Transmission Date: 20091009
  Serious: Yes (Death, Hospitalization)
  Sender: FDA-Public Use
  Company Number: DE-GENENTECH-282819

PATIENT
  Sex: Male

DRUGS (2)
  1. BEVACIZUMAB [Suspect]
     Indication: NON-SMALL CELL LUNG CANCER
     Dosage: 1400 MG, Q3W
     Route: 042
     Dates: start: 20080724
  2. ERLOTINIB [Suspect]
     Indication: NON-SMALL CELL LUNG CANCER
     Dosage: 75 MG, QD
     Route: 048
     Dates: start: 20080724

REACTIONS (2)
  - CHEST PAIN [None]
  - PULMONARY EMBOLISM [None]
